FAERS Safety Report 7602684-3 (Version None)
Quarter: 2011Q3

REPORT INFORMATION
  Report Type: 
  Country: None (occurrence: None)
  Receive Date: 20110701
  Receipt Date: 20090316
  Transmission Date: 20111222
  Serious: Yes (Other)
  Sender: FDA-Public Use
  Company Number: SIM_00027_2011

PATIENT
  Sex: Female

DRUGS (1)
  1. PINK EYE RELIEF (HOMEOPATHIC) [Suspect]
     Indication: CONJUNCTIVITIS INFECTIVE
     Dosage: (3 GTT QD, AS NEEDED OPHTHALMIC)
     Route: 047
     Dates: start: 20090313

REACTIONS (3)
  - OCULAR HYPERAEMIA [None]
  - EYE IRRITATION [None]
  - CHEMICAL BURNS OF EYE [None]
